FAERS Safety Report 4866879-4 (Version None)
Quarter: 2005Q4

REPORT INFORMATION
  Report Type: 
  Country: None (occurrence: None)
  Receive Date: 20051222
  Receipt Date: 20051212
  Transmission Date: 20060501
  Serious: Yes (Death)
  Sender: FDA-Public Use
  Company Number: JP200512001925

PATIENT
  Age: 52 Year
  Sex: Female

DRUGS (9)
  1. ZYPREXA [Suspect]
     Indication: SCHIZOPHRENIA
     Dosage: SEE IMAGE
     Route: 048
     Dates: start: 20050719, end: 20050721
  2. ZYPREXA [Suspect]
     Indication: SCHIZOPHRENIA
     Dosage: SEE IMAGE
     Route: 048
     Dates: start: 20050722, end: 20050805
  3. ZYPREXA [Suspect]
     Indication: SCHIZOPHRENIA
     Dosage: SEE IMAGE
     Route: 048
     Dates: start: 20050806, end: 20050826
  4. ZYPREXA [Suspect]
     Indication: SCHIZOPHRENIA
     Dosage: SEE IMAGE
     Route: 048
     Dates: start: 20050827, end: 20051122
  5. LULLAN                      (PEROSPIRONE HYDROCHLORIDE) [Concomitant]
  6. RISPERIDONE [Concomitant]
  7. LORAZEPAM [Concomitant]
  8. ROIPNOL (FLUNITRAZEPAM) [Concomitant]
  9. PURSENNID (SENNA LEAF) [Concomitant]

REACTIONS (4)
  - ACUTE MYOCARDIAL INFARCTION [None]
  - DIABETES MELLITUS [None]
  - WATER INTOXICATION [None]
  - WEIGHT INCREASED [None]
